FAERS Safety Report 7078671-3 (Version None)
Quarter: 2010Q4

REPORT INFORMATION
  Report Type: 
  Country: None (occurrence: None)
  Receive Date: 20101101
  Receipt Date: 20101101
  Transmission Date: 20110411
  Serious: Yes (Life-Threatening)
  Sender: FDA-Public Use
  Company Number: None

PATIENT
  Age: 47 Year
  Sex: Female
  Weight: 118.3888 kg

DRUGS (2)
  1. VANCOMYCIN [Suspect]
     Indication: CHRONIC SINUSITIS
     Dosage: 2 ML TID NASAL
     Route: 045
     Dates: start: 20101013, end: 20101015
  2. BETAMETHASONE [Suspect]
     Dosage: 2 ML TID NASAL
     Route: 045
     Dates: start: 20101013, end: 20101023

REACTIONS (5)
  - COUGH [None]
  - DRUG INEFFECTIVE [None]
  - DYSPNOEA [None]
  - PALPITATIONS [None]
  - WHEEZING [None]
